FAERS Safety Report 22668614 (Version 5)
Quarter: 2024Q1

REPORT INFORMATION
  Report Type: Spontaneous
  Country: JP (occurrence: None)
  Receive Date: 20230704
  Receipt Date: 20240130
  Transmission Date: 20240410
  Serious: Yes (Death, Life-Threatening, Hospitalization)
  Sender: FDA-Public Use
  Company Number: 2023A151837

PATIENT
  Age: 71 Year
  Sex: Female
  Weight: 46 kg

DRUGS (14)
  1. TAGRISSO [Suspect]
     Active Substance: OSIMERTINIB
     Indication: Non-small cell lung cancer
     Route: 048
     Dates: start: 20220526, end: 20230219
  2. CELECOXIB [Concomitant]
     Active Substance: CELECOXIB
     Indication: Metastases to bone
     Route: 048
     Dates: start: 202201
  3. REBAMIPIDE [Concomitant]
     Active Substance: REBAMIPIDE
     Indication: Gastritis
     Route: 048
     Dates: start: 202201
  4. ELDECALCITOL [Concomitant]
     Active Substance: ELDECALCITOL
     Indication: Osteoporosis
     Route: 048
     Dates: start: 202201
  5. MINODRONIC ACID [Concomitant]
     Active Substance: MINODRONIC ACID
     Indication: Osteoporosis
     Route: 048
     Dates: start: 202201
  6. TRAMADOL HYDROCHLORIDE [Concomitant]
     Active Substance: TRAMADOL HYDROCHLORIDE
     Indication: Metastases to bone
     Route: 048
     Dates: start: 20220524, end: 20220610
  7. ASTOMIN [Concomitant]
     Indication: Non-small cell lung cancer
     Route: 048
     Dates: start: 20220525
  8. METOCLOPRAMIDE [Concomitant]
     Active Substance: METOCLOPRAMIDE
     Indication: Gastritis
     Route: 048
     Dates: start: 20220525, end: 20220601
  9. FEXOFENADINE HYDROCHLORIDE [Concomitant]
     Active Substance: FEXOFENADINE HYDROCHLORIDE
     Indication: Urticaria
     Route: 048
     Dates: start: 20220531
  10. MAGNESIUM OXIDE [Concomitant]
     Active Substance: MAGNESIUM OXIDE
     Indication: Constipation
     Route: 048
     Dates: start: 20220601
  11. CALCIUM CARBONATE\CHOLECALCIFEROL\MAGNESIUM CARBONATE [Concomitant]
     Active Substance: CALCIUM CARBONATE\CHOLECALCIFEROL\MAGNESIUM CARBONATE
     Indication: Metastases to bone
     Route: 048
     Dates: start: 20220609, end: 20230309
  12. UNITALC (STERILE TALC) [Concomitant]
     Active Substance: TALC
     Indication: Non-small cell lung cancer
     Route: 038
     Dates: start: 20220526, end: 20220526
  13. TORSEMIDE [Concomitant]
     Active Substance: TORSEMIDE
     Indication: Non-small cell lung cancer
     Route: 048
     Dates: start: 20221212, end: 20230309
  14. DENOSUMAB [Concomitant]
     Active Substance: DENOSUMAB
     Indication: Metastases to bone
     Route: 058
     Dates: start: 20220609, end: 20230116

REACTIONS (5)
  - Hepatitis B reactivation [Fatal]
  - Hepatic failure [Fatal]
  - Urinary tract infection [Unknown]
  - Cytomegalovirus infection [Unknown]
  - Urticaria [Recovering/Resolving]

NARRATIVE: CASE EVENT DATE: 20220528
